FAERS Safety Report 20714135 (Version 2)
Quarter: 2022Q2

REPORT INFORMATION
  Report Type: Other
  Country: US (occurrence: None)
  Receive Date: 20220415
  Receipt Date: 20220422
  Transmission Date: 20220720
  Serious: No
  Sender: FDA-Public Use
  Company Number: US-ROCHE-2926582

PATIENT
  Sex: Female

DRUGS (3)
  1. PULMOZYME [Suspect]
     Active Substance: DORNASE ALFA
     Indication: Adenoidal hypertrophy
     Dosage: NEBULIZE THE CONTENTS OF 1 VIALS DAILY, NON-ORAL
     Route: 055
  2. PULMOZYME [Suspect]
     Active Substance: DORNASE ALFA
     Indication: Cerebral palsy
  3. PULMOZYME [Suspect]
     Active Substance: DORNASE ALFA
     Indication: Irregular breathing

REACTIONS (1)
  - Off label use [Unknown]
